FAERS Safety Report 8387195-2 (Version None)
Quarter: 2012Q2

REPORT INFORMATION
  Report Type: 
  Country: None (occurrence: None)
  Receive Date: 20120525
  Receipt Date: 20120521
  Transmission Date: 20120825
  Serious: Yes (Other)
  Sender: FDA-Public Use
  Company Number: US-ROCHE-1064481

PATIENT
  Sex: Female
  Weight: 59.928 kg

DRUGS (3)
  1. PREDNISONE TAB [Concomitant]
     Indication: SKIN REACTION
     Route: 048
  2. XELODA [Suspect]
     Indication: BREAST CANCER METASTATIC
     Route: 048
     Dates: start: 20120421, end: 20120503
  3. OXYCODONE HCL [Concomitant]
     Indication: PAIN
     Route: 048
     Dates: start: 20120418

REACTIONS (8)
  - ERYTHEMA [None]
  - PRURITUS [None]
  - RASH MACULAR [None]
  - BLISTER [None]
  - PHOTOSENSITIVITY REACTION [None]
  - SUNBURN [None]
  - ABDOMINAL DISCOMFORT [None]
  - NASAL DISCOMFORT [None]
